FAERS Safety Report 7611575-3 (Version None)
Quarter: 2011Q3

REPORT INFORMATION
  Report Type: 
  Country: None (occurrence: None)
  Receive Date: 20110715
  Receipt Date: 20110712
  Transmission Date: 20111222
  Serious: Yes (Disabling)
  Sender: FDA-Public Use
  Company Number: US-GLAXOSMITHKLINE-A0936497A

PATIENT
  Age: 74 Year
  Sex: Female

DRUGS (3)
  1. ATIVAN [Concomitant]
  2. REQUIP [Concomitant]
  3. LAMOTRIGINE [Suspect]
     Indication: ANTIDEPRESSANT THERAPY
     Dosage: 100MG TWICE PER DAY
     Route: 048
     Dates: start: 20100101, end: 20110601

REACTIONS (2)
  - DYSKINESIA [None]
  - THERAPEUTIC RESPONSE UNEXPECTED [None]
